FAERS Safety Report 5848481-0 (Version None)
Quarter: 2008Q3

REPORT INFORMATION
  Report Type: 
  Country: None (occurrence: None)
  Receive Date: 20080815
  Receipt Date: 20080815
  Transmission Date: 20090109
  Serious: Yes (Other)
  Sender: FDA-Public Use
  Company Number: None

PATIENT
  Sex: Female

DRUGS (1)
  1. TARCEVA [Suspect]
     Dosage: 100MG QD PO
     Route: 048
     Dates: start: 20080417, end: 20080721

REACTIONS (3)
  - FATIGUE [None]
  - RASH [None]
  - WEIGHT DECREASED [None]
